FAERS Safety Report 11386075 (Version 2)
Quarter: 2019Q3

REPORT INFORMATION
  Report Type: Spontaneous
  Country: US (occurrence: US)
  Receive Date: 20150817
  Receipt Date: 20190823
  Transmission Date: 20191004
  Serious: Yes (Death, Hospitalization, Other)
  Sender: FDA-Public Use
  Company Number: US-009507513-1508USA006126

PATIENT
  Sex: Female
  Weight: 81.63 kg

DRUGS (1)
  1. JANUMET [Suspect]
     Active Substance: METFORMIN HYDROCHLORIDE\SITAGLIPTIN PHOSPHATE
     Dosage: 50/1000 MG, TWICE DAILY
     Route: 048
     Dates: start: 20090819, end: 20120427

REACTIONS (23)
  - Hepatic steatosis [Unknown]
  - Nephropathy [Not Recovered/Not Resolved]
  - Urethral dilatation [Unknown]
  - Diabetic eye disease [Unknown]
  - Rotator cuff syndrome [Unknown]
  - Bile duct stenosis [Unknown]
  - Biliary dilatation [Unknown]
  - Type 1 diabetes mellitus [Unknown]
  - Hypoglycaemia [Not Recovered/Not Resolved]
  - Dyspepsia [Unknown]
  - Diabetes mellitus inadequate control [Unknown]
  - Neuropathy peripheral [Not Recovered/Not Resolved]
  - Oedema [Unknown]
  - Pancreatitis [Not Recovered/Not Resolved]
  - Mental disorder [Unknown]
  - Hypertension [Recovered/Resolved]
  - Ductal adenocarcinoma of pancreas [Fatal]
  - Transient ischaemic attack [Recovered/Resolved]
  - Blindness transient [Not Recovered/Not Resolved]
  - Emotional disorder [Unknown]
  - Hypoaesthesia [Unknown]
  - Cough [Unknown]
  - Constipation [Unknown]

NARRATIVE: CASE EVENT DATE: 2009
